FAERS Safety Report 6879619-4 (Version None)
Quarter: 2010Q3

REPORT INFORMATION
  Report Type: 
  Country: None (occurrence: None)
  Receive Date: 20100728
  Receipt Date: 20100723
  Transmission Date: 20110219
  Serious: Yes (Hospitalization, Disabling)
  Sender: FDA-Public Use
  Company Number: GB-WYE-G06452110

PATIENT
  Sex: Female

DRUGS (8)
  1. PREMARIN [Suspect]
     Indication: VAGINAL HAEMORRHAGE
     Dosage: DOSE AND FREQUENCY UNSPECIFIED
     Dates: start: 20100625, end: 20100716
  2. NITROGLYCERIN [Concomitant]
     Dosage: UNKNOWN
  3. LANSOPRAZOLE [Concomitant]
     Indication: ABDOMINAL SYMPTOM
     Dosage: UNKNOWN
  4. FRUSEMIDE [Concomitant]
     Dosage: UNKNOWN
  5. ASPIRIN [Concomitant]
     Dosage: UNKNOWN
  6. SIMVASTATIN [Concomitant]
     Indication: BLOOD CHOLESTEROL
     Dosage: UNKNOWN
  7. ISOSORBIDE MONONITRATE [Interacting]
     Indication: ANGINA PECTORIS
     Dosage: UNKNOWN
  8. ALPRENOLOL HYDROCHLORIDE [Concomitant]
     Dosage: UNKNOWN

REACTIONS (5)
  - ANGINA PECTORIS [None]
  - CONDITION AGGRAVATED [None]
  - DRUG INTERACTION [None]
  - FALL [None]
  - MALAISE [None]
